FAERS Safety Report 11226317 (Version 1)
Quarter: 2015Q2

REPORT INFORMATION
  Report Type: Report from Study
  Country: JP (occurrence: JP)
  Receive Date: 20150629
  Receipt Date: 20150629
  Transmission Date: 20150821
  Serious: Yes (Hospitalization)
  Sender: FDA-Public Use
  Company Number: JP-DSJP-DSJ-2015-119616

PATIENT

DRUGS (49)
  1. OLMETEC [Suspect]
     Active Substance: OLMESARTAN MEDOXOMIL
     Indication: HYPERTENSION
     Dosage: 10 MG, QD
     Route: 048
     Dates: start: 20130303, end: 20130322
  2. OLMETEC [Suspect]
     Active Substance: OLMESARTAN MEDOXOMIL
     Dosage: 20 MG, QD
     Route: 048
     Dates: start: 20130323
  3. FEBUXOSTAT. [Suspect]
     Active Substance: FEBUXOSTAT
     Dosage: 20 MG, QD
     Route: 048
     Dates: start: 20131108
  4. LASIX [Suspect]
     Active Substance: FUROSEMIDE
     Indication: CARDIAC FAILURE
     Dosage: 60 MG, QD
     Route: 048
     Dates: start: 20130121, end: 20130314
  5. ALDACTONE [Suspect]
     Active Substance: SPIRONOLACTONE
     Indication: CARDIAC FAILURE
     Dosage: 25 MG, QD
     Route: 048
     Dates: start: 20130307, end: 20130502
  6. HIRUDOID                           /00723701/ [Concomitant]
     Indication: ECZEMA ASTEATOTIC
     Dosage: UNK
     Route: 065
     Dates: start: 20130220, end: 20130226
  7. HIRUDOID                           /00723701/ [Concomitant]
     Indication: HAND DERMATITIS
     Dosage: UNK
     Route: 065
     Dates: start: 20131105, end: 20131205
  8. SAMSCA [Concomitant]
     Active Substance: TOLVAPTAN
     Dosage: 7.5 MG, QD
     Route: 048
     Dates: start: 20130307
  9. PURSENNID                          /00142207/ [Concomitant]
     Active Substance: SENNOSIDES A AND B
     Indication: CONSTIPATION
     Dosage: 24 MG, QD
     Route: 048
     Dates: start: 20150424
  10. LASIX [Suspect]
     Active Substance: FUROSEMIDE
     Dosage: 20 MG, QD
     Route: 048
     Dates: start: 20131129, end: 20140108
  11. ALLELOCK [Concomitant]
     Active Substance: OLOPATADINE HYDROCHLORIDE
     Indication: ECZEMA ASTEATOTIC
     Dosage: 10 MG, QD
     Route: 048
     Dates: start: 20130220, end: 20130328
  12. PROMAC                             /00024401/ [Concomitant]
     Active Substance: NITROFURANTOIN
     Indication: PROPHYLAXIS AGAINST GASTROINTESTINAL ULCER
     Dosage: 2 DF, QD
     Route: 048
     Dates: start: 20130223
  13. ANTEBATE [Concomitant]
     Active Substance: BETAMETHASONE DIPROPIONATE
     Indication: HAND DERMATITIS
     Dosage: UNK
     Route: 065
     Dates: start: 20131105, end: 20131205
  14. MYSER                              /01249201/ [Concomitant]
     Indication: ECZEMA ASTEATOTIC
     Dosage: UNK
     Route: 065
     Dates: start: 20130220, end: 20131104
  15. ARGAMATE [Concomitant]
     Active Substance: POLYSTYRENE
     Indication: HYPERKALAEMIA
     Dosage: 50 G, QD
     Route: 048
     Dates: start: 20130418, end: 20130506
  16. DIART [Concomitant]
     Active Substance: AZOSEMIDE
     Dosage: 15 MG, QD
     Route: 048
     Dates: start: 20130912
  17. DEXAN VG [Concomitant]
     Indication: ECZEMA
     Dosage: UNK
     Route: 048
     Dates: start: 20140430, end: 20140522
  18. ALDACTONE [Suspect]
     Active Substance: SPIRONOLACTONE
     Dosage: 25 MG, QD
     Route: 048
     Dates: start: 20131108, end: 20140429
  19. FOLIAMIN [Concomitant]
     Active Substance: FOLIC ACID
     Indication: ANAEMIA
     Dosage: 15 MG, QD
     Route: 048
     Dates: start: 20130121
  20. HANP FOR INJECTION 1000 [Concomitant]
     Dosage: 3000 ?G, QD
     Route: 065
     Dates: start: 20131101, end: 20131114
  21. AMLODIN [Concomitant]
     Active Substance: AMLODIPINE BESYLATE
     Indication: HYPERTENSION
     Dosage: 2.5 MG, QD
     Route: 065
     Dates: start: 20131120, end: 20150211
  22. CALONAL [Concomitant]
     Active Substance: ACETAMINOPHEN
     Indication: PYREXIA
     Dosage: UNK
     Route: 048
     Dates: start: 20140927, end: 20141202
  23. TRANSAMIN [Concomitant]
     Active Substance: TRANEXAMIC ACID
     Indication: DENTAL CARIES
     Dosage: UNK
     Route: 048
     Dates: start: 20140925, end: 20140927
  24. ALLEGRA [Concomitant]
     Active Substance: FEXOFENADINE HYDROCHLORIDE
     Indication: ECZEMA ASTEATOTIC
     Dosage: 120 MG, QD
     Route: 048
     Dates: start: 20130213, end: 20130219
  25. GASTER [Concomitant]
     Active Substance: FAMOTIDINE
     Indication: PROPHYLAXIS AGAINST GASTROINTESTINAL ULCER
     Dosage: 20 MG, QD
     Route: 048
     Dates: start: 20130222
  26. PROMAC                             /00024401/ [Concomitant]
     Active Substance: NITROFURANTOIN
     Indication: DYSGEUSIA
     Dosage: UNK
     Route: 048
     Dates: start: 201406, end: 20150323
  27. ARTIST [Concomitant]
     Active Substance: CARVEDILOL
     Indication: CARDIAC FAILURE
     Dosage: 2.5 MG, QD
     Dates: start: 20130307
  28. POLARAMINE [Concomitant]
     Active Substance: DEXCHLORPHENIRAMINE MALEATE
     Indication: ECZEMA ASTEATOTIC
     Dosage: 2 MG, QD
     Route: 048
     Dates: start: 20131119, end: 20140429
  29. DERMOVATE [Concomitant]
     Active Substance: CLOBETASOL
     Indication: HAND DERMATITIS
     Dosage: UNK
     Route: 065
     Dates: start: 20131112, end: 20140109
  30. KALIMATE [Concomitant]
     Active Substance: CALCIUM POLYSTYRENE SULFONATE
     Indication: HYPERKALAEMIA
     Dosage: 50 G, QD
     Route: 048
     Dates: start: 20140424, end: 20140618
  31. KALIMATE [Concomitant]
     Active Substance: CALCIUM POLYSTYRENE SULFONATE
     Dosage: 25 G, QD
     Route: 048
     Dates: start: 20140619, end: 20140820
  32. CALONAL [Concomitant]
     Active Substance: ACETAMINOPHEN
     Indication: DENTAL CARIES
     Dosage: UNK
     Route: 048
     Dates: start: 20140925, end: 20140927
  33. LASIX [Suspect]
     Active Substance: FUROSEMIDE
     Dosage: 40 MG, QD
     Route: 048
     Dates: start: 20130315, end: 20131128
  34. ALDACTONE [Suspect]
     Active Substance: SPIRONOLACTONE
     Dosage: 12.5 MG, QD
     Route: 048
     Dates: start: 20130822, end: 20130911
  35. FERROMIA [Concomitant]
     Active Substance: FERROUS CITRATE
     Dosage: 50 MG, QD
     Route: 048
     Dates: start: 20140717
  36. CONCENTRATED RED CELLS [Concomitant]
     Active Substance: HUMAN RED BLOOD CELL
     Indication: ANAEMIA
     Dosage: 4 IU, QD
     Route: 065
     Dates: start: 20130318, end: 20130318
  37. FLOMOX                             /01418603/ [Concomitant]
     Indication: DENTAL CARIES
     Dosage: UNK
     Route: 048
     Dates: start: 20140925, end: 20140927
  38. OLOPATADINE HYDROCHLORIDE. [Concomitant]
     Active Substance: OLOPATADINE HYDROCHLORIDE
     Indication: ECZEMA
     Dosage: 10 MG, QD
     Route: 048
     Dates: start: 20140430, end: 20140522
  39. TOKISHAKUYAKUSAN                   /08000701/ [Concomitant]
     Indication: DYSGEUSIA
     Dosage: UNK
     Route: 048
     Dates: start: 201406, end: 20150323
  40. KALIMATE [Concomitant]
     Active Substance: CALCIUM POLYSTYRENE SULFONATE
     Dosage: 50 G, QD
     Route: 048
     Dates: start: 20140821
  41. FEBUXOSTAT. [Suspect]
     Active Substance: FEBUXOSTAT
     Indication: HYPERURICAEMIA
     Dosage: 10 MG, QD
     Route: 048
     Dates: start: 20130213, end: 20131107
  42. LOCOID [Concomitant]
     Active Substance: HYDROCORTISONE BUTYRATE
     Indication: ECZEMA ASTEATOTIC
     Dosage: UNK
     Route: 065
     Dates: start: 20130220, end: 20130226
  43. SAMSCA [Concomitant]
     Active Substance: TOLVAPTAN
     Indication: CARDIAC FAILURE
     Dosage: 15 MG, QD
     Route: 048
     Dates: start: 20130121, end: 20130306
  44. URSO [Concomitant]
     Active Substance: URSODIOL
     Indication: HEPATIC CONGESTION
     Dosage: 600 MG, QD
     Route: 048
     Dates: start: 20130121
  45. LIVACT                             /00847901/ [Concomitant]
     Active Substance: ISOLEUCINE\LEUCINE\VALINE
     Indication: HEPATIC CONGESTION
     Dosage: 12.45 G, QD
     Route: 048
     Dates: start: 20130121, end: 20140429
  46. FERROMIA [Concomitant]
     Active Substance: FERROUS CITRATE
     Indication: ANAEMIA
     Dosage: 100 MG, QD
     Route: 048
     Dates: start: 20130507, end: 20140109
  47. DIART [Concomitant]
     Active Substance: AZOSEMIDE
     Indication: CARDIAC FAILURE
     Dosage: 30 MG, QD
     Route: 048
     Dates: start: 20130822, end: 20130911
  48. AMLODIN [Concomitant]
     Active Substance: AMLODIPINE BESYLATE
     Dosage: 5 MG, QD
     Route: 065
     Dates: start: 20150212
  49. MECOBALAMIN [Concomitant]
     Active Substance: METHYLCOBALAMIN
     Indication: THALAMUS HAEMORRHAGE
     Dosage: 1500 ?G, QD
     Route: 048
     Dates: start: 20140430, end: 20140522

REACTIONS (2)
  - Thalamus haemorrhage [Recovered/Resolved with Sequelae]
  - Hyperkalaemia [Recovered/Resolved]

NARRATIVE: CASE EVENT DATE: 20130418
